FAERS Safety Report 8468170 (Version 4)
Quarter: 2013Q1

REPORT INFORMATION
  Report Type: Report from Study
  Country: GB (occurrence: GB)
  Receive Date: 20120320
  Receipt Date: 20130114
  Transmission Date: 20140127
  Serious: Yes (Hospitalization)
  Sender: FDA-Public Use
  Company Number: GB-GLAXOSMITHKLINE-B0706134B

PATIENT
  Age: 68 Year
  Sex: Female
  Weight: 57 kg

DRUGS (3)
  1. LAPATINIB [Suspect]
     Indication: BREAST CANCER METASTATIC
     Route: 048
     Dates: start: 20110119, end: 20120224
  2. PACLITAXEL [Suspect]
     Indication: BREAST CANCER METASTATIC
     Dosage: 136MG WEEKLY
     Route: 042
     Dates: start: 20110119, end: 20110621
  3. AMOXICILLIN [Concomitant]
     Indication: TOOTH EXTRACTION
     Route: 065
     Dates: start: 20120313

REACTIONS (2)
  - Hypercalcaemia [Recovered/Resolved]
  - Hypokalaemia [Not Recovered/Not Resolved]
